FAERS Safety Report 8778535 (Version 2)
Quarter: 2012Q4

REPORT INFORMATION
  Report Type: 
  Country: GB (occurrence: GB)
  Receive Date: 20120912
  Receipt Date: 20120913
  Transmission Date: 20130627
  Serious: Yes (Other)
  Sender: FDA-Public Use
  Company Number: GB-ROCHE-1122133

PATIENT
  Age: 59 Year
  Sex: Male
  Weight: 122 kg

DRUGS (7)
  1. ROACTEMRA [Suspect]
     Indication: RHEUMATOID ARTHRITIS
     Dosage: 3-4 courses given, last dose taken on 18/Aug/2012
     Route: 042
     Dates: start: 20120418, end: 20120818
  2. SULFAZINE [Concomitant]
     Route: 065
  3. HYDROXYCHLOROQUINE [Concomitant]
     Route: 065
  4. PRENISOLONE [Concomitant]
     Route: 065
  5. METFORMIN [Concomitant]
     Indication: DIABETES MELLITUS
     Route: 065
  6. IRBESARTAN [Concomitant]
     Indication: BLOOD PRESSURE
     Route: 065
  7. BISOPROLOL [Concomitant]
     Indication: BLOOD PRESSURE
     Route: 065

REACTIONS (2)
  - Acute myocardial infarction [Recovering/Resolving]
  - Drug ineffective [Unknown]
